FAERS Safety Report 19322933 (Version 1)
Quarter: 2021Q2

REPORT INFORMATION
  Report Type: Spontaneous
  Country: NL (occurrence: NL)
  Receive Date: 20210528
  Receipt Date: 20210528
  Transmission Date: 20210717
  Serious: Yes (Life-Threatening, Hospitalization)
  Sender: FDA-Public Use
  Company Number: NL-ROCHE-2833983

PATIENT
  Sex: Female
  Weight: 60 kg

DRUGS (2)
  1. OCREVUS [Suspect]
     Active Substance: OCRELIZUMAB
     Indication: MULTIPLE SCLEROSIS
     Dosage: 600 MG IV 1 X /6 MAAND
     Route: 042
     Dates: start: 2018, end: 20201228
  2. BACLOFEN. [Concomitant]
     Active Substance: BACLOFEN
     Dosage: TABLET, 10 MG (MILLIGRAM)

REACTIONS (1)
  - Herpes simplex encephalitis [Recovering/Resolving]

NARRATIVE: CASE EVENT DATE: 20210126
